FAERS Safety Report 25519786 (Version 6)
Quarter: 2025Q3

REPORT INFORMATION
  Report Type: Report from Study
  Country: MX (occurrence: MX)
  Receive Date: 20250704
  Receipt Date: 20250927
  Transmission Date: 20251021
  Serious: Yes (Other)
  Sender: TAKEDA
  Company Number: MX-TAKEDA-2025TUS060287

PATIENT
  Age: 24 Year
  Sex: Male

DRUGS (3)
  1. VEDOLIZUMAB [Suspect]
     Active Substance: VEDOLIZUMAB
     Indication: Colitis ulcerative
  2. MESALAMINE [Suspect]
     Active Substance: MESALAMINE
     Indication: Product used for unknown indication
  3. PREDNISONE [Suspect]
     Active Substance: PREDNISONE
     Indication: Product used for unknown indication
     Dosage: 50 MILLIGRAM, QD

REACTIONS (15)
  - Haematochezia [Recovered/Resolved]
  - Rectal haemorrhage [Unknown]
  - Frequent bowel movements [Recovered/Resolved]
  - Mucous stools [Recovered/Resolved]
  - Rectal tenesmus [Recovered/Resolved]
  - Dyschezia [Recovered/Resolved]
  - Petechiae [Unknown]
  - Insomnia [Unknown]
  - Food craving [Unknown]
  - Respiratory tract infection [Unknown]
  - Abdominal distension [Unknown]
  - Constipation [Unknown]
  - Rash [Recovered/Resolved]
  - Nasopharyngitis [Unknown]
  - Flatulence [Unknown]

NARRATIVE: CASE EVENT DATE: 20250701
